FAERS Safety Report 14984886 (Version 1)
Quarter: 2018Q2

REPORT INFORMATION
  Report Type: Spontaneous
  Country: DE (occurrence: DE)
  Receive Date: 20180607
  Receipt Date: 20180607
  Transmission Date: 20180711
  Serious: Yes (Hospitalization)
  Sender: FDA-Public Use
  Company Number: DE-TEVA-2018-DE-902252

PATIENT
  Age: 74 Year
  Sex: Male

DRUGS (8)
  1. QUETIAPINE FUMARATE. [Suspect]
     Active Substance: QUETIAPINE FUMARATE
     Dosage: 150 MILLIGRAM DAILY; 50 MG, 1-0.5-1-0.5
     Route: 065
  2. SIMVASTATIN. [Concomitant]
     Active Substance: SIMVASTATIN
     Dosage: 20 MILLIGRAM DAILY; 40 MG, 0-0-0.5-0
  3. PHENPROCOUMON [Concomitant]
     Active Substance: PHENPROCOUMON
     Dosage: 1.5 MILLIGRAM DAILY; 3 MG, 0-0-0.5-0
     Route: 065
  4. LACTULOSE. [Concomitant]
     Active Substance: LACTULOSE
     Dosage: 20 MG, 1-0-0-0
     Route: 065
  5. FUROSEMIDE, SPIRONOLACTONE [Concomitant]
     Active Substance: FUROSEMIDE
     Dosage: 2 DOSAGE FORMS DAILY; 50|20 MG, 1-1-0-0
     Route: 065
  6. BISOPROLOL [Concomitant]
     Active Substance: BISOPROLOL
     Dosage: 2.5 MILLIGRAM DAILY; 2.5 MG, 0.5-0-0-0.5
     Route: 065
  7. FOLS?URE [Concomitant]
     Dosage: 5 MILLIGRAM DAILY; 5 MG, 1-0-0-0
     Route: 065
  8. PIPAMPERONE [Suspect]
     Active Substance: PIPAMPERONE
     Dosage: 40 MILLIGRAM DAILY; 40 MG, 0-0.5-0.5-0
     Route: 065

REACTIONS (2)
  - Seizure [Unknown]
  - Drug prescribing error [Unknown]

NARRATIVE: CASE EVENT DATE: 20151004
